FAERS Safety Report 8846767 (Version 1)
Quarter: 2012Q4

REPORT INFORMATION
  Report Type: Report from Study
  Country: JP (occurrence: JP)
  Receive Date: 20121018
  Receipt Date: 20121018
  Transmission Date: 20130627
  Serious: Yes (Hospitalization)
  Sender: FDA-Public Use
  Company Number: JP-ABBOTT-12P-087-0995244-00

PATIENT
  Age: 69 Year
  Sex: Male
  Weight: 82.5 kg

DRUGS (4)
  1. CLARITHROMYCIN [Suspect]
     Indication: HELICOBACTER INFECTION
     Route: 048
     Dates: start: 20120815, end: 20120821
  2. TAK-438 [Suspect]
     Indication: HELICOBACTER INFECTION
     Route: 048
     Dates: start: 20120815, end: 20120821
  3. AG-1749 [Suspect]
     Indication: HELICOBACTER INFECTION
     Route: 048
     Dates: start: 20120815, end: 20120821
  4. AMOXICILLIN [Suspect]
     Indication: HELICOBACTER INFECTION
     Route: 048
     Dates: start: 20120815, end: 20120821

REACTIONS (1)
  - Acute myocardial infarction [Recovering/Resolving]
